FAERS Safety Report 4468325-1 (Version None)
Quarter: 2004Q4

REPORT INFORMATION
  Report Type: 
  Country: None (occurrence: None)
  Receive Date: 20041006
  Receipt Date: 20040929
  Transmission Date: 20050328
  Serious: Yes (Death)
  Sender: FDA-Public Use
  Company Number: A403625410/PHRM2004 FR02893

PATIENT
  Age: 87 Year
  Sex: Female

DRUGS (11)
  1. AK-FLUOR INJECTION, AKORN [Suspect]
     Indication: ANGIOGRAM RETINA
     Dosage: IV
     Route: 042
     Dates: start: 20040830
  2. NEOSYNEPHRINE EYE DROP [Concomitant]
  3. MYDRIATICUM EYE DROPS [Concomitant]
  4. BEFIZAL TABLET [Concomitant]
  5. CORDIUM [Concomitant]
  6. FUROSEMIDE [Concomitant]
  7. VASTAREL TABLET [Concomitant]
  8. GINKO FORT CAPSULE [Concomitant]
  9. PLAVIX [Concomitant]
  10. CORDIPATCH TRANS-THERAPEUTIC-SYSTEM [Concomitant]
  11. BETAHISTINE TABLET [Concomitant]

REACTIONS (1)
  - DEATH [None]
